FAERS Safety Report 24960638 (Version 1)
Quarter: 2025Q1

REPORT INFORMATION
  Report Type: Spontaneous
  Country: US (occurrence: US)
  Receive Date: 20250212
  Receipt Date: 20250212
  Transmission Date: 20250409
  Serious: Yes (Other)
  Sender: COOPERSURGICAL
  Company Number: US-COOPERSURGICAL, INC.-2025CPS000635

PATIENT
  Age: 52 Year
  Sex: Female
  Weight: 70.748 kg

DRUGS (4)
  1. PARAGARD T 380A [Suspect]
     Active Substance: COPPER
     Route: 015
     Dates: start: 20130508
  2. REBIF [Concomitant]
     Active Substance: INTERFERON BETA-1A
     Dates: start: 201012
  3. VITAMIN D NOS [Concomitant]
     Active Substance: CHOLECALCIFEROL\ERGOCALCIFEROL
     Dates: start: 201003, end: 201212
  4. ESCITALOPRAM [Concomitant]
     Active Substance: ESCITALOPRAM OXALATE
     Dates: start: 201101

REACTIONS (7)
  - Reproductive complication associated with device [Unknown]
  - Deep vein thrombosis [Unknown]
  - Device breakage [Recovered/Resolved]
  - Foreign body in reproductive tract [Recovered/Resolved]
  - Complication of device removal [Recovered/Resolved]
  - Menopause [Unknown]
  - Hypertension [Unknown]

NARRATIVE: CASE EVENT DATE: 20220728
